FAERS Safety Report 4917529-X (Version None)
Quarter: 2006Q1

REPORT INFORMATION
  Report Type: 
  Country: None (occurrence: None)
  Receive Date: 20060221
  Receipt Date: 20050921
  Transmission Date: 20060701
  Serious: Yes (Hospitalization, Disabling)
  Sender: FDA-Public Use
  Company Number: US-MERCK-0509USA03420

PATIENT
  Age: 63 Year
  Sex: Male
  Weight: 66 kg

DRUGS (5)
  1. VIOXX [Suspect]
     Indication: ARTHRITIS
     Route: 048
     Dates: start: 19991201, end: 20010403
  2. PRILOSEC [Concomitant]
     Route: 065
  3. COREG [Concomitant]
     Indication: EYE DISORDER
     Route: 065
     Dates: start: 19700101
  4. COREG [Concomitant]
     Indication: CARDIAC DISORDER
     Route: 065
     Dates: start: 19700101
  5. METHAZOLAMIDE [Concomitant]
     Indication: GLAUCOMA
     Route: 065
     Dates: start: 19700101

REACTIONS (5)
  - ACUTE MYOCARDIAL INFARCTION [None]
  - ARTERIOSCLEROSIS CORONARY ARTERY [None]
  - HYPERCHOLESTEROLAEMIA [None]
  - HYPERTENSIVE HEART DISEASE [None]
  - ISCHAEMIC CARDIOMYOPATHY [None]
